FAERS Safety Report 14003202 (Version 1)
Quarter: 2017Q3

REPORT INFORMATION
  Report Type: Spontaneous
  Country: DE (occurrence: DE)
  Receive Date: 20170922
  Receipt Date: 20170922
  Transmission Date: 20171128
  Serious: Yes (Other)
  Sender: FDA-Public Use
  Company Number: PHHY2017DE135916

PATIENT
  Age: 41 Year
  Sex: Female

DRUGS (1)
  1. DEFERASIROX [Suspect]
     Active Substance: DEFERASIROX
     Indication: IRON OVERLOAD
     Route: 048

REACTIONS (6)
  - Metastases to pancreas [Unknown]
  - Musculoskeletal disorder [Unknown]
  - Metastases to thyroid [Unknown]
  - Gastrointestinal mucosal disorder [Unknown]
  - Bone deformity [Unknown]
  - Neuroendocrine tumour [Unknown]

NARRATIVE: CASE EVENT DATE: 201708
